APPROVED DRUG PRODUCT: ZYPREXA RELPREVV
Active Ingredient: OLANZAPINE PAMOATE
Strength: EQ 300MG BASE/VIAL
Dosage Form/Route: SUSPENSION, EXTENDED RELEASE;INTRAMUSCULAR
Application: N022173 | Product #002
Applicant: CHEPLAPHARM REGISTRATION GMBH
Approved: Dec 11, 2009 | RLD: Yes | RS: No | Type: RX